FAERS Safety Report 26194777 (Version 1)
Quarter: 2025Q4

REPORT INFORMATION
  Report Type: Spontaneous
  Country: CA (occurrence: CA)
  Receive Date: 20251224
  Receipt Date: 20251224
  Transmission Date: 20260118
  Serious: Yes (Other)
  Sender: CELLTRION
  Company Number: CA-CELLTRION INC.-2025CA041919

PATIENT

DRUGS (4)
  1. TRUXIMA [Suspect]
     Active Substance: RITUXIMAB-ABBS
     Indication: Vasculitis
     Dosage: 500 MG, Q 6 MONTHS
     Route: 042
     Dates: start: 20250528
  2. TRUXIMA [Suspect]
     Active Substance: RITUXIMAB-ABBS
     Dosage: 500 MG,  EVERY 6 MONTHS
     Route: 042
     Dates: start: 20250610
  3. TRUXIMA [Suspect]
     Active Substance: RITUXIMAB-ABBS
     Dosage: 500 MG, EVERY 6 MONTHS
     Route: 042
     Dates: start: 20251212
  4. CINQAIR [Suspect]
     Active Substance: RESLIZUMAB
     Indication: Vasculitis
     Dosage: 500MG EVERY 6  MONTHS
     Route: 042
     Dates: start: 20250528

REACTIONS (5)
  - Hypertension [Recovering/Resolving]
  - Infusion site extravasation [Recovered/Resolved]
  - Pain [Recovered/Resolved]
  - Oedema peripheral [Recovering/Resolving]
  - Intentional product use issue [Unknown]

NARRATIVE: CASE EVENT DATE: 20251212
